FAERS Safety Report 8392101-0 (Version None)
Quarter: 2012Q2

REPORT INFORMATION
  Report Type: 
  Country: None (occurrence: None)
  Receive Date: 20120529
  Receipt Date: 20120511
  Transmission Date: 20120825
  Serious: Yes (Other)
  Sender: FDA-Public Use
  Company Number: BR-EISAI INC-E3810-05518-SPO-BR

PATIENT
  Sex: Male
  Weight: 78 kg

DRUGS (2)
  1. MOTILIUM [Suspect]
     Route: 048
     Dates: start: 20120409, end: 20120423
  2. RABEPRAZOLE SODIUM [Suspect]
     Route: 048
     Dates: start: 20120409, end: 20120401

REACTIONS (7)
  - URINARY TRACT INFECTION [None]
  - ABDOMINAL DISTENSION [None]
  - MUSCLE SPASMS [None]
  - PYREXIA [None]
  - CHEST PAIN [None]
  - FEELING JITTERY [None]
  - MEDICATION ERROR [None]
